FAERS Safety Report 5619032-0 (Version None)
Quarter: 2008Q1

REPORT INFORMATION
  Report Type: 
  Country: None (occurrence: None)
  Receive Date: 20080207
  Receipt Date: 20080201
  Transmission Date: 20080703
  Serious: Yes (Hospitalization, Other)
  Sender: FDA-Public Use
  Company Number: GB-BOEHRINGER INGELHEIM GMBH, GERMANY-2007-UK-02240UK

PATIENT
  Age: 88 Year
  Sex: Male

DRUGS (9)
  1. MICARDIS [Suspect]
     Indication: HYPERTENSION
     Route: 048
     Dates: start: 20061117, end: 20070709
  2. ASPIRIN [Concomitant]
     Indication: CEREBROVASCULAR ACCIDENT
     Route: 048
  3. PHENYTOIN [Concomitant]
  4. EPANUTIN [Concomitant]
     Indication: EPILEPSY
     Route: 048
     Dates: start: 20010101
  5. LABETALOL HCL [Concomitant]
     Indication: HYPERTENSION
     Route: 048
  6. MOVICOL [Concomitant]
     Indication: CONSTIPATION
     Dosage: ONE SACHET PER DAY
     Route: 048
     Dates: start: 20011101
  7. CALFOVIT D3 [Concomitant]
     Indication: HIP FRACTURE
     Dosage: ONE SACHET PER DAY
     Route: 048
     Dates: start: 20040119
  8. CALFOVIT D3 [Concomitant]
     Indication: ASTHENIA
  9. LISINOPRIL [Concomitant]
     Indication: COUGH

REACTIONS (5)
  - BALANCE DISORDER [None]
  - FALL [None]
  - PYREXIA [None]
  - URINARY TRACT INFECTION [None]
  - VERTIGO [None]
